FAERS Safety Report 7588065-X (Version None)
Quarter: 2011Q3

REPORT INFORMATION
  Report Type: 
  Country: None (occurrence: None)
  Receive Date: 20110705
  Receipt Date: 20110628
  Transmission Date: 20111222
  Serious: No
  Sender: FDA-Public Use
  Company Number: US-PFIZER INC-2011090305

PATIENT
  Sex: Male
  Weight: 99.773 kg

DRUGS (1)
  1. CELEBREX [Suspect]
     Indication: BACK PAIN
     Dosage: 200 MG, UNK
     Route: 048
     Dates: start: 20110426

REACTIONS (4)
  - LOCAL SWELLING [None]
  - SWELLING FACE [None]
  - RASH PAPULAR [None]
  - ERYTHEMA [None]
